FAERS Safety Report 13956851 (Version 1)
Quarter: 2017Q3

REPORT INFORMATION
  Report Type: Spontaneous
  Country: CA (occurrence: CA)
  Receive Date: 20170912
  Receipt Date: 20170912
  Transmission Date: 20171128
  Serious: Yes (Death, Life-Threatening, Hospitalization, Other)
  Sender: FDA-Public Use
  Company Number: CA-LUPIN PHARMACEUTICALS INC.-2017-05244

PATIENT
  Age: 68 Year
  Sex: Female

DRUGS (1)
  1. NITROFURANTOIN. [Suspect]
     Active Substance: NITROFURANTOIN
     Indication: CYSTITIS
     Dosage: UNK
     Route: 065

REACTIONS (2)
  - Respiratory failure [Fatal]
  - Hepatic failure [Fatal]
